FAERS Safety Report 8955975 (Version 2)
Quarter: 2012Q4

REPORT INFORMATION
  Report Type: 
  Country: US (occurrence: US)
  Receive Date: 20121210
  Receipt Date: 20121219
  Transmission Date: 20130627
  Serious: Yes (Other)
  Sender: FDA-Public Use
  Company Number: US-BAYER-2012-125400

PATIENT
  Age: 29 Year
  Sex: Female

DRUGS (2)
  1. MIRENA [Suspect]
     Indication: CONTRACEPTION
     Dosage: 20 mcg/24hr, CONT
     Route: 015
     Dates: start: 200511, end: 201209
  2. MIRENA [Suspect]
     Indication: MENSTRUAL DISORDER
     Dosage: 20 mcg/24hr, CONT
     Route: 015
     Dates: start: 20120917, end: 201211

REACTIONS (13)
  - Genital haemorrhage [None]
  - Device dislocation [None]
  - Menometrorrhagia [Not Recovered/Not Resolved]
  - Fungal infection [Not Recovered/Not Resolved]
  - Product contamination microbial [None]
  - Abdominal pain lower [Not Recovered/Not Resolved]
  - Abnormal weight gain [Not Recovered/Not Resolved]
  - Amenorrhoea [Not Recovered/Not Resolved]
  - Abdominal pain lower [None]
  - Device misuse [None]
  - Procedural pain [None]
  - Medical device pain [Not Recovered/Not Resolved]
  - Genital discharge [Not Recovered/Not Resolved]
